FAERS Safety Report 4594182-9 (Version None)
Quarter: 2005Q1

REPORT INFORMATION
  Report Type: 
  Country: None (occurrence: None)
  Receive Date: 20050301
  Receipt Date: 20050221
  Transmission Date: 20050727
  Serious: Yes (Hospitalization)
  Sender: FDA-Public Use
  Company Number: FR-GLAXOSMITHKLINE-B0372810A

PATIENT
  Age: 3 Day
  Sex: Female

DRUGS (2)
  1. ZIDOVUDINE [Suspect]
     Indication: ANTIVIRAL PROPHYLAXIS
     Dosage: 2MGK FOUR TIMES PER DAY
     Route: 048
     Dates: start: 20050201
  2. UNKNOWN ANTIRETROVIRAL TREATMENT [Concomitant]
     Indication: ANTIVIRAL PROPHYLAXIS

REACTIONS (6)
  - BLOOD BICARBONATE DECREASED [None]
  - HYPERKALAEMIA [None]
  - HYPOCALCAEMIA [None]
  - HYPONATRAEMIA [None]
  - NEONATAL DISORDER [None]
  - WEIGHT INCREASED [None]
